FAERS Safety Report 13443027 (Version 8)
Quarter: 2019Q2

REPORT INFORMATION
  Report Type: Spontaneous
  Country: US (occurrence: US)
  Receive Date: 20170414
  Receipt Date: 20190628
  Transmission Date: 20190711
  Serious: Yes (Other)
  Sender: FDA-Public Use
  Company Number: US-PFIZER INC-2016508384

PATIENT
  Age: 48 Year
  Sex: Female

DRUGS (18)
  1. CARBAMAZEPINE. [Concomitant]
     Active Substance: CARBAMAZEPINE
     Dosage: 400 MG, 1X/DAY (200 MG TABLET 2 QHS)
     Route: 048
     Dates: start: 20160425
  2. NITROFURANTOIN MACROCRYSTALS [Concomitant]
     Active Substance: NITROFURANTOIN
     Dosage: 100 MG, 1X/DAY
     Route: 048
  3. ZALEPLON. [Concomitant]
     Active Substance: ZALEPLON
     Dosage: UNK, AS NEEDED (10 MG TAKE 1 TO 2 CAPSULES AT BEDTIME
     Dates: start: 20160829
  4. LYRICA [Suspect]
     Active Substance: PREGABALIN
     Dosage: 200 MG, 1X/DAY
     Route: 048
     Dates: start: 20160712
  5. SYNTHROID [Concomitant]
     Active Substance: LEVOTHYROXINE SODIUM
     Dosage: 100 UG, 1X/DAY  [1 QAM AC]
     Route: 048
  6. TRAMADOL HCL [Concomitant]
     Active Substance: TRAMADOL HYDROCHLORIDE
     Indication: PAIN
     Dosage: UNK, 4X/DAY (50 MG TABLET, 1/2- 2 QID PRN)
     Route: 048
     Dates: start: 20160523
  7. LYRICA [Suspect]
     Active Substance: PREGABALIN
     Indication: SPINAL CORD INJURY
     Dosage: 200 MG, 4X/DAY
     Route: 048
  8. BUPROPION HCL [Concomitant]
     Active Substance: BUPROPION HYDROCHLORIDE
     Dosage: 300 MG, 1X/DAY [IN THE MORNING]
     Route: 048
     Dates: start: 20160620
  9. PROPRANOLOL HCL [Concomitant]
     Active Substance: PROPRANOLOL HYDROCHLORIDE
     Dosage: 40 MG, 2X/DAY
     Route: 048
     Dates: start: 20160510
  10. TOPAMAX [Concomitant]
     Active Substance: TOPIRAMATE
     Dosage: 200 MG, 2X/DAY
     Route: 048
     Dates: start: 20160601
  11. LYRICA [Suspect]
     Active Substance: PREGABALIN
     Dosage: 300 MG, 2X/DAY
     Route: 048
     Dates: start: 20160712
  12. CYCLOBENZAPRINE HCL [Concomitant]
     Active Substance: CYCLOBENZAPRINE HYDROCHLORIDE
     Dosage: UNK, AS NEEDED (10 MG TABLET 1/2-1 TID PRN)
     Route: 048
  13. HYDROCODONE/ACETAMINOPHEN [Concomitant]
     Active Substance: ACETAMINOPHEN\HYDROCODONE
     Dosage: 1 DF, UNK [HYDROCODONE BITARTRATE 10 MG] [PARACETAMOL 325 MG]
     Route: 048
  14. ZOLPIDEM TARTRATE. [Concomitant]
     Active Substance: ZOLPIDEM TARTRATE
     Dosage: 10 MG, 1X/DAY (QHS PRN)
     Route: 048
     Dates: start: 20160329
  15. RIZATRIPTAN BENZOATE. [Concomitant]
     Active Substance: RIZATRIPTAN BENZOATE
     Indication: HEADACHE
     Dosage: 10 MG, AS NEEDED [REPEAT EVERY 2 HOURS AS NEEDED, MAXIMUM 3 TABLETS IN 24 HOURS]
     Route: 048
     Dates: start: 20160510
  16. LAMOTRIGINE. [Concomitant]
     Active Substance: LAMOTRIGINE
     Dosage: 400 MG, 1X/DAY [QHS]
     Route: 048
  17. FLOMAX [Concomitant]
     Active Substance: TAMSULOSIN HYDROCHLORIDE
     Dosage: 0.4 MG, UNK
     Route: 048
  18. PROMETHAZINE HCL [Concomitant]
     Active Substance: PROMETHAZINE HYDROCHLORIDE
     Dosage: UNK, 1X/DAY (25 MG TABLET 1/2- 1 QD)
     Route: 048
     Dates: start: 20161006

REACTIONS (9)
  - Off label use [Unknown]
  - Musculoskeletal discomfort [Unknown]
  - Urinary tract infection [Unknown]
  - Foot fracture [Unknown]
  - Prescribed overdose [Unknown]
  - Product dispensing error [Unknown]
  - Anxiety [Unknown]
  - Neuralgia [Unknown]
  - Feeling abnormal [Unknown]
